FAERS Safety Report 6915973-2 (Version None)
Quarter: 2010Q3

REPORT INFORMATION
  Report Type: 
  Country: None (occurrence: None)
  Receive Date: 20100805
  Receipt Date: 20100727
  Transmission Date: 20110219
  Serious: Yes (Hospitalization, Other)
  Sender: FDA-Public Use
  Company Number: 2010US002718

PATIENT
  Age: 32 Year
  Sex: Male

DRUGS (11)
  1. PROGRAF [Suspect]
     Indication: RENAL TRANSPLANT
     Dosage: 6 MG, BID, ORAL; 2 MG, BID, ORAL; 0.5 MG, BID, ORAL
     Route: 048
     Dates: start: 20071030
  2. NORVASC [Concomitant]
  3. PRILOSEC (OMEPRAZOLE) [Concomitant]
  4. PROCARDIA XL [Concomitant]
  5. CLONIDINE [Concomitant]
  6. SODIUM BICARBONATE IN PLASTIC CONTAINER [Concomitant]
  7. PERCOCET [Concomitant]
  8. VITAMIN B COMPLEX (VITAMIN-B-KOMPLEX STANDARD) [Concomitant]
  9. PREDNISOLONE [Concomitant]
  10. LISINOPRIL [Concomitant]
  11. NORMODYNE [Concomitant]

REACTIONS (14)
  - ANAEMIA OF CHRONIC DISEASE [None]
  - CHRONIC ALLOGRAFT NEPHROPATHY [None]
  - DIABETIC NEPHROPATHY [None]
  - DIALYSIS [None]
  - DRUG EFFECT DECREASED [None]
  - HYDRONEPHROSIS [None]
  - HYPERTENSION [None]
  - HYPOGLYCAEMIC UNCONSCIOUSNESS [None]
  - IDIOPATHIC THROMBOCYTOPENIC PURPURA [None]
  - KIDNEY TRANSPLANT REJECTION [None]
  - MALAISE [None]
  - ORAL INFECTION [None]
  - TYPE 2 DIABETES MELLITUS [None]
  - URINARY TRACT INFECTION STAPHYLOCOCCAL [None]
